FAERS Safety Report 5776286-8 (Version None)
Quarter: 2008Q2

REPORT INFORMATION
  Report Type: 
  Country: None (occurrence: None)
  Receive Date: 20080617
  Receipt Date: 20080617
  Transmission Date: 20081010
  Serious: Yes (Death)
  Sender: FDA-Public Use
  Company Number: None

PATIENT
  Sex: Male
  Weight: 95.2554 kg

DRUGS (1)
  1. CHANTIX [Suspect]
     Indication: SMOKING CESSATION THERAPY
     Dosage: 1 TABLET 2 X DAY BY MOUTH
     Route: 048
     Dates: start: 20061201, end: 20070128

REACTIONS (2)
  - COMPLETED SUICIDE [None]
  - THINKING ABNORMAL [None]
